FAERS Safety Report 12535003 (Version 1)
Quarter: 2016Q3

REPORT INFORMATION
  Report Type: Spontaneous
  Country: US (occurrence: US)
  Receive Date: 20160707
  Receipt Date: 20160707
  Transmission Date: 20161109
  Serious: No
  Sender: FDA-Public Use
  Company Number: US-TEVA-584749USA

PATIENT
  Age: 87 Year
  Sex: Female
  Weight: 72.64 kg

DRUGS (2)
  1. CHLORDIAZEPOXIDE. [Suspect]
     Active Substance: CHLORDIAZEPOXIDE
     Indication: ANXIETY
     Dates: start: 20140805
  2. CHLORDIAZEPOXIDE. [Suspect]
     Active Substance: CHLORDIAZEPOXIDE
     Indication: STRESS

REACTIONS (3)
  - Abdominal discomfort [Unknown]
  - Rash [Unknown]
  - Feeling abnormal [Unknown]
